FAERS Safety Report 18760702 (Version 2)
Quarter: 2021Q1

REPORT INFORMATION
  Report Type: Spontaneous
  Country: IT (occurrence: IT)
  Receive Date: 20210120
  Receipt Date: 20210215
  Transmission Date: 20210419
  Serious: Yes (Other)
  Sender: FDA-Public Use
  Company Number: IT-TEVA-2021-IT-1869530

PATIENT
  Age: 55 Year
  Sex: Female

DRUGS (2)
  1. FOSCARNET [Suspect]
     Active Substance: FOSCARNET
     Indication: CYTOMEGALOVIRUS INFECTION REACTIVATION
     Route: 065
  2. VALGANCICLOVIR. [Suspect]
     Active Substance: VALGANCICLOVIR
     Indication: CYTOMEGALOVIRUS INFECTION REACTIVATION
     Dosage: MAINTENANCE THERAPY
     Route: 065

REACTIONS (3)
  - Pathogen resistance [Unknown]
  - Myelosuppression [Unknown]
  - Electrolyte imbalance [Unknown]
